FAERS Safety Report 23634068 (Version 1)
Quarter: 2024Q1

REPORT INFORMATION
  Report Type: Spontaneous
  Country: CA (occurrence: CA)
  Receive Date: 20240314
  Receipt Date: 20240314
  Transmission Date: 20240410
  Serious: Yes (Hospitalization, Other)
  Sender: FDA-Public Use
  Company Number: CA-PFIZER INC-202200510690

PATIENT
  Age: 22 Year
  Sex: Male

DRUGS (4)
  1. ABRILADA [Suspect]
     Active Substance: ADALIMUMAB-AFZB
     Indication: Crohn^s disease
     Dosage: 40 MG, WEEKLY
     Route: 058
  2. ABRILADA [Suspect]
     Active Substance: ADALIMUMAB-AFZB
     Dosage: 40 MG, WEEKLY (PREFILLED PEN)
     Route: 058
     Dates: start: 20220520
  3. ATIVAN [Concomitant]
     Active Substance: LORAZEPAM
     Dosage: 1 DF, DOSAGE NOT AVAILABLE
     Route: 065
  4. DILANTIN [Concomitant]
     Active Substance: PHENYTOIN
     Dosage: 1 DF, DILANTINATIVAN
     Route: 065

REACTIONS (7)
  - Seizure [Unknown]
  - Epilepsy [Unknown]
  - Therapeutic product effect incomplete [Unknown]
  - Asthenia [Unknown]
  - Balance disorder [Unknown]
  - Off label use [Unknown]
  - Device difficult to use [Unknown]

NARRATIVE: CASE EVENT DATE: 20240101
